FAERS Safety Report 21392973 (Version 5)
Quarter: 2023Q1

REPORT INFORMATION
  Report Type: Spontaneous
  Country: JP (occurrence: None)
  Receive Date: 20220929
  Receipt Date: 20230126
  Transmission Date: 20230417
  Serious: Yes (Hospitalization)
  Sender: FDA-Public Use
  Company Number: 2022A325697

PATIENT
  Age: 30393 Day
  Sex: Male
  Weight: 49 kg

DRUGS (3)
  1. TAGRISSO [Suspect]
     Active Substance: OSIMERTINIB
     Indication: Non-small cell lung cancer
     Route: 048
     Dates: start: 20220115, end: 20220629
  2. TAGRISSO [Suspect]
     Active Substance: OSIMERTINIB
     Indication: Non-small cell lung cancer
     Route: 048
     Dates: start: 20220630, end: 20220913
  3. TAGRISSO [Suspect]
     Active Substance: OSIMERTINIB
     Indication: Non-small cell lung cancer
     Route: 048
     Dates: start: 202206, end: 202209

REACTIONS (4)
  - Myocarditis [Unknown]
  - Ejection fraction decreased [Unknown]
  - Renal impairment [Unknown]
  - Delirium [Unknown]

NARRATIVE: CASE EVENT DATE: 20220310
